FAERS Safety Report 6896881-2 (Version None)
Quarter: 2010Q3

REPORT INFORMATION
  Report Type: 
  Country: None (occurrence: None)
  Receive Date: 20100802
  Receipt Date: 20070220
  Transmission Date: 20110219
  Serious: No
  Sender: FDA-Public Use
  Company Number: US-PFIZER INC-2007015046

PATIENT
  Sex: Female
  Weight: 102.1 kg

DRUGS (10)
  1. LYRICA [Suspect]
     Indication: PAIN IN EXTREMITY
     Dates: start: 20070214, end: 20070217
  2. VALSARTAN [Concomitant]
  3. ATENOLOL [Concomitant]
  4. LOVASTATIN [Concomitant]
     Indication: BLOOD CHOLESTEROL
  5. NORVASC [Concomitant]
     Dates: start: 20050101
  6. AVANDIA [Concomitant]
     Indication: BLOOD PRESSURE
  7. GLIMEPIRIDE [Concomitant]
  8. ALL OTHER THERAPEUTIC PRODUCTS [Concomitant]
  9. ALL OTHER THERAPEUTIC PRODUCTS [Concomitant]
  10. HUMALOG MIX [Concomitant]
     Indication: DIABETES MELLITUS
     Dates: start: 20050101

REACTIONS (1)
  - HEART RATE INCREASED [None]
